FAERS Safety Report 23318451 (Version 1)
Quarter: 2023Q4

REPORT INFORMATION
  Report Type: Spontaneous
  Country: JP (occurrence: JP)
  Receive Date: 20231220
  Receipt Date: 20231220
  Transmission Date: 20240110
  Serious: Yes (Hospitalization)
  Sender: FDA-Public Use
  Company Number: JP-ABBVIE-5394434

PATIENT
  Sex: Male

DRUGS (1)
  1. RINVOQ [Suspect]
     Active Substance: UPADACITINIB
     Indication: Psoriatic arthropathy
     Dosage: FORM STRENGTH: 15 MILLIGRAM
     Route: 048
     Dates: end: 20230902

REACTIONS (5)
  - Herpes zoster disseminated [Recovered/Resolved with Sequelae]
  - Eye disorder [Recovered/Resolved]
  - Nausea [Unknown]
  - Hypophagia [Unknown]
  - Gait inability [Unknown]

NARRATIVE: CASE EVENT DATE: 20230831
